FAERS Safety Report 5120465-X (Version None)
Quarter: 2006Q4

REPORT INFORMATION
  Report Type: 
  Country: None (occurrence: None)
  Receive Date: 20061004
  Receipt Date: 20060927
  Transmission Date: 20070319
  Serious: Yes (Death, Hospitalization)
  Sender: FDA-Public Use
  Company Number: PHBS2006JP15025

PATIENT
  Age: 44 Year
  Sex: Female

DRUGS (4)
  1. GLEEVEC [Suspect]
     Indication: CHRONIC MYELOID LEUKAEMIA
     Dosage: 400 MG/D
     Route: 048
     Dates: start: 20010101
  2. GLEEVEC [Suspect]
     Dosage: 600 MG/D
     Route: 048
     Dates: start: 20040201
  3. GLEEVEC [Suspect]
     Dosage: 800 MG/D
     Route: 048
  4. GLEEVEC [Suspect]
     Dosage: 400 MG/D
     Route: 048

REACTIONS (3)
  - ALVEOLAR PROTEINOSIS [None]
  - INTERSTITIAL LUNG DISEASE [None]
  - RENAL FAILURE ACUTE [None]
